FAERS Safety Report 25941754 (Version 1)
Quarter: 2025Q4

REPORT INFORMATION
  Report Type: Spontaneous
  Country: US (occurrence: US)
  Receive Date: 20251020
  Receipt Date: 20251020
  Transmission Date: 20260118
  Serious: No
  Sender: LEGACY PHARMACEUTICAL PACKAGING
  Company Number: US-LEGACY PHARMA INC.-2025LEG00009

PATIENT
  Age: 60 Year
  Sex: Male
  Weight: 80.726 kg

DRUGS (1)
  1. ZANAFLEX [Suspect]
     Active Substance: TIZANIDINE HYDROCHLORIDE
     Indication: Neck pain
     Dosage: UNK

REACTIONS (1)
  - Gastrointestinal disorder [Unknown]
